FAERS Safety Report 25492613 (Version 4)
Quarter: 2025Q3

REPORT INFORMATION
  Report Type: Spontaneous
  Country: US (occurrence: US)
  Receive Date: 20250630
  Receipt Date: 20250910
  Transmission Date: 20251020
  Serious: Yes (Disabling, Other)
  Sender: AMGEN
  Company Number: US-AMGEN-USASP2025127435

PATIENT
  Age: 69 Year
  Sex: Male

DRUGS (51)
  1. TEPEZZA [Suspect]
     Active Substance: TEPROTUMUMAB-TRBW
     Indication: Endocrine ophthalmopathy
     Route: 040
     Dates: start: 20200918, end: 20200918
  2. TEPEZZA [Suspect]
     Active Substance: TEPROTUMUMAB-TRBW
     Indication: Graves^ disease
     Dosage: 1640 MILLIGRAM, Q3WK (SECOND INFUSION)
     Route: 040
     Dates: start: 20201009, end: 20201009
  3. TEPEZZA [Suspect]
     Active Substance: TEPROTUMUMAB-TRBW
     Dosage: 1640 MILLIGRAM, Q3WK (THIRD INFUSION)
     Route: 040
     Dates: start: 20201030, end: 20201030
  4. TEPEZZA [Suspect]
     Active Substance: TEPROTUMUMAB-TRBW
     Dosage: 1640 MILLIGRAM, Q3WK (FOURTH INFUSION)
     Route: 040
     Dates: start: 20201120, end: 20201120
  5. TEPEZZA [Suspect]
     Active Substance: TEPROTUMUMAB-TRBW
     Dosage: 1640 MILLIGRAM, Q3WK (20MG/KG) (FIFTH INFUSION)
     Route: 040
     Dates: start: 20201210, end: 20201210
  6. TEPEZZA [Suspect]
     Active Substance: TEPROTUMUMAB-TRBW
     Route: 040
     Dates: start: 20201210, end: 20201210
  7. TEPEZZA [Suspect]
     Active Substance: TEPROTUMUMAB-TRBW
     Dosage: 1640 MILLIGRAM, Q3WK (20MG/KG) (SIXTH INFUSION)
     Route: 040
     Dates: start: 20201231, end: 20201231
  8. TEPEZZA [Suspect]
     Active Substance: TEPROTUMUMAB-TRBW
     Dosage: 1640 MILLIGRAM, Q3WK (SEVENTH INFUSION)
     Route: 040
     Dates: start: 20210122, end: 20210122
  9. FISH OIL [Concomitant]
     Active Substance: FISH OIL
     Route: 048
  10. MINERALS\VITAMINS [Concomitant]
     Active Substance: MINERALS\VITAMINS
     Route: 048
  11. COENZYME Q10 [Concomitant]
     Active Substance: DIETARY SUPPLEMENT\UBIDECARENONE
     Route: 065
  12. HERBALS\TURMERIC [Concomitant]
     Active Substance: HERBALS\TURMERIC
     Route: 065
  13. PROSCAR [Concomitant]
     Active Substance: FINASTERIDE
     Dosage: 5 MILLIGRAM, QD
     Route: 048
  14. FLOMAX [Concomitant]
     Active Substance: TAMSULOSIN HYDROCHLORIDE
     Route: 048
  15. Artificial tears [Concomitant]
     Dosage: UNK UNK, QHS
     Route: 047
  16. LIORESAL [Concomitant]
     Active Substance: BACLOFEN
     Route: 048
     Dates: end: 20240412
  17. TAPAZOLE [Concomitant]
     Active Substance: METHIMAZOLE
     Dosage: 10 MILLIGRAM, TID
     Route: 048
     Dates: start: 20200722, end: 20240412
  18. TAPAZOLE [Concomitant]
     Active Substance: METHIMAZOLE
     Route: 048
     Dates: start: 20240412, end: 20240412
  19. MAXITROL [Concomitant]
     Active Substance: DEXAMETHASONE\NEOMYCIN SULFATE\POLYMYXIN B SULFATE
     Dosage: UNK UNK, BID
     Route: 047
  20. LOTEMAX [Concomitant]
     Active Substance: LOTEPREDNOL ETABONATE
     Route: 065
  21. PROPARACAINE [Concomitant]
     Active Substance: PROPARACAINE
     Route: 065
  22. SYSTANE (HYPROMELLOSE 2910 (4000 MPA.S)) [Concomitant]
     Active Substance: HYPROMELLOSE 2910 (4000 MPA.S)
     Route: 047
  23. REFRESH CLASSIC [Concomitant]
     Active Substance: POLYVINYL ALCOHOL\POVIDONE
     Route: 047
  24. BLINK TEARS [Concomitant]
     Active Substance: POLYETHYLENE GLYCOL 400
     Route: 047
  25. LANOLIN\PARAFFIN [Concomitant]
     Active Substance: LANOLIN\PARAFFIN
  26. TYLENOL [Concomitant]
     Active Substance: ACETAMINOPHEN
     Route: 048
     Dates: start: 20200918, end: 20200918
  27. TYLENOL [Concomitant]
     Active Substance: ACETAMINOPHEN
     Route: 048
     Dates: start: 20201009, end: 20201009
  28. TYLENOL [Concomitant]
     Active Substance: ACETAMINOPHEN
     Route: 048
     Dates: start: 20201030, end: 20201030
  29. TYLENOL [Concomitant]
     Active Substance: ACETAMINOPHEN
     Route: 048
     Dates: start: 20201120, end: 20201120
  30. TYLENOL [Concomitant]
     Active Substance: ACETAMINOPHEN
     Route: 048
     Dates: start: 20201210, end: 20201210
  31. TYLENOL [Concomitant]
     Active Substance: ACETAMINOPHEN
     Route: 048
     Dates: start: 20201231, end: 20201231
  32. TYLENOL [Concomitant]
     Active Substance: ACETAMINOPHEN
     Route: 048
     Dates: start: 20210122, end: 20210122
  33. ZYRTEC [Concomitant]
     Active Substance: CETIRIZINE HYDROCHLORIDE
     Route: 048
     Dates: start: 20200918, end: 20200918
  34. ZYRTEC [Concomitant]
     Active Substance: CETIRIZINE HYDROCHLORIDE
     Route: 048
     Dates: start: 20201009, end: 20201009
  35. ZYRTEC [Concomitant]
     Active Substance: CETIRIZINE HYDROCHLORIDE
     Route: 048
     Dates: start: 20201030, end: 20201030
  36. ZYRTEC [Concomitant]
     Active Substance: CETIRIZINE HYDROCHLORIDE
     Route: 048
     Dates: start: 20201120, end: 20201120
  37. ZYRTEC [Concomitant]
     Active Substance: CETIRIZINE HYDROCHLORIDE
     Route: 048
     Dates: start: 20201210, end: 20201210
  38. ZYRTEC [Concomitant]
     Active Substance: CETIRIZINE HYDROCHLORIDE
     Route: 048
     Dates: start: 20201231, end: 20201231
  39. ZYRTEC [Concomitant]
     Active Substance: CETIRIZINE HYDROCHLORIDE
     Route: 048
     Dates: start: 20210122, end: 20210122
  40. SOLU-MEDROL [Concomitant]
     Active Substance: METHYLPREDNISOLONE SODIUM SUCCINATE
     Dosage: 125 MILLIGRAM, QD
     Route: 040
     Dates: start: 20200918, end: 20200918
  41. SOLU-MEDROL [Concomitant]
     Active Substance: METHYLPREDNISOLONE SODIUM SUCCINATE
     Dosage: 125 MILLIGRAM, QD
     Route: 040
     Dates: start: 20201009, end: 20201009
  42. SOLU-MEDROL [Concomitant]
     Active Substance: METHYLPREDNISOLONE SODIUM SUCCINATE
     Dosage: 125 MILLIGRAM, QD
     Route: 040
     Dates: start: 20201030, end: 20201030
  43. SOLU-MEDROL [Concomitant]
     Active Substance: METHYLPREDNISOLONE SODIUM SUCCINATE
     Dosage: 125 MILLIGRAM, QD
     Route: 040
     Dates: start: 20201120, end: 20201120
  44. SOLU-MEDROL [Concomitant]
     Active Substance: METHYLPREDNISOLONE SODIUM SUCCINATE
     Dosage: 125 MILLIGRAM, QD
     Route: 040
     Dates: start: 20201210, end: 20201210
  45. SOLU-MEDROL [Concomitant]
     Active Substance: METHYLPREDNISOLONE SODIUM SUCCINATE
     Dosage: 125 MILLIGRAM, QD
     Route: 040
     Dates: start: 20201231, end: 20201231
  46. SOLU-MEDROL [Concomitant]
     Active Substance: METHYLPREDNISOLONE SODIUM SUCCINATE
     Dosage: 125 MILLIGRAM, QD
     Route: 040
     Dates: start: 20210122, end: 20210122
  47. SODIUM CHLORIDE [Concomitant]
     Active Substance: SODIUM CHLORIDE
     Route: 065
  48. COVID-19 vaccine [Concomitant]
     Route: 065
     Dates: start: 20210227
  49. COVID-19 vaccine [Concomitant]
     Route: 065
     Dates: start: 20210327
  50. XYLOCAINE [Concomitant]
     Active Substance: LIDOCAINE HYDROCHLORIDE
     Route: 065
  51. ANCEF [Concomitant]
     Active Substance: CEFAZOLIN SODIUM
     Route: 065

REACTIONS (44)
  - Deafness neurosensory [Not Recovered/Not Resolved]
  - Endocrine ophthalmopathy [Unknown]
  - Graves^ disease [Unknown]
  - Mixed deafness [Unknown]
  - Autonomic neuropathy [Unknown]
  - Aortic arteriosclerosis [Unknown]
  - Nephrolithiasis [Unknown]
  - Urinary retention [Unknown]
  - Skin necrosis [Unknown]
  - Carotid artery stenosis [Unknown]
  - Emotional distress [Unknown]
  - Anxiety [Unknown]
  - Discomfort [Unknown]
  - Tinnitus [Not Recovered/Not Resolved]
  - Product use complaint [Unknown]
  - Peripheral venous disease [Unknown]
  - Therapy interrupted [Unknown]
  - Eye pain [Unknown]
  - Tooth disorder [Unknown]
  - Tonsillitis [Unknown]
  - Superior semicircular canal dehiscence [Unknown]
  - Hepatic steatosis [Unknown]
  - Essential hypertension [Unknown]
  - Peripheral vascular disorder [Unknown]
  - Hepatic cyst [Unknown]
  - Spinal osteoarthritis [Unknown]
  - Hypogonadism male [Unknown]
  - Body mass index increased [Unknown]
  - Hyperlipidaemia [Unknown]
  - Benign prostatic hyperplasia [Unknown]
  - Lower urinary tract symptoms [Unknown]
  - Osteoarthritis [Unknown]
  - Bone disorder [Unknown]
  - Impaired fasting glucose [Unknown]
  - Bronchitis [Unknown]
  - Arthralgia [Unknown]
  - Foreign body in ear [Unknown]
  - Aortic dilatation [Unknown]
  - Tachycardia [Unknown]
  - SARS-CoV-2 test positive [Unknown]
  - Ear discomfort [Unknown]
  - Taste disorder [Unknown]
  - Autophony [Unknown]
  - Muscle spasms [Unknown]

NARRATIVE: CASE EVENT DATE: 20210527
